FAERS Safety Report 4730087-8 (Version None)
Quarter: 2005Q3

REPORT INFORMATION
  Report Type: 
  Country: None (occurrence: None)
  Receive Date: 20050801
  Receipt Date: 20050718
  Transmission Date: 20060218
  Serious: Yes (Hospitalization)
  Sender: FDA-Public Use
  Company Number: GBWYE840118JUL05

PATIENT
  Sex: Female
  Weight: 64 kg

DRUGS (7)
  1. ENBREL [Suspect]
     Indication: RHEUMATOID ARTHRITIS
     Route: 058
     Dates: start: 20040607
  2. AZATHIOPRINE [Concomitant]
  3. HYDROXYCHLOROQUINE SULFATE [Concomitant]
  4. PREDNISOLONE [Concomitant]
  5. IRON SULFATETHIAMIN COMPOUND TAB [Concomitant]
  6. LANSOPRAZOLE [Concomitant]
  7. FLURBIPROFEN [Concomitant]

REACTIONS (2)
  - BODY TEMPERATURE INCREASED [None]
  - HYPERHIDROSIS [None]
